FAERS Safety Report 10179297 (Version 1)
Quarter: 2014Q2

REPORT INFORMATION
  Report Type: Spontaneous
  Country: FR (occurrence: None)
  Receive Date: 20140515
  Receipt Date: 20140515
  Transmission Date: 20141212
  Serious: Yes (Hospitalization)
  Sender: FDA-Public Use
  Company Number: FRA-CLT-2012159

PATIENT
  Age: 22 Year
  Sex: Female

DRUGS (5)
  1. CYSTADANE - BETAINE ANHYDROUS -ORAL POWDER [Suspect]
     Indication: HOMOCYSTINURIA
     Route: 048
  2. SPECIAFOLDINE [Concomitant]
  3. CYSTINE B6 [Concomitant]
  4. VITAMIN B6 [Concomitant]
  5. VITAMIN C [Concomitant]

REACTIONS (2)
  - Abortion spontaneous [None]
  - Exposure during pregnancy [None]
